FAERS Safety Report 7464073-4 (Version None)
Quarter: 2011Q2

REPORT INFORMATION
  Report Type: 
  Country: None (occurrence: None)
  Receive Date: 20110506
  Receipt Date: 20110427
  Transmission Date: 20111010
  Serious: Yes (Hospitalization, Other)
  Sender: FDA-Public Use
  Company Number: US-ASTRAZENECA-2011SE11733

PATIENT
  Age: 55 Year
  Sex: Female

DRUGS (1)
  1. ARIMIDEX [Suspect]
     Route: 048

REACTIONS (3)
  - KNEE ARTHROPLASTY [None]
  - ARTHROPATHY [None]
  - MYOCARDIAL INFARCTION [None]
